FAERS Safety Report 10669423 (Version 3)
Quarter: 2016Q4

REPORT INFORMATION
  Report Type: Spontaneous
  Country: US (occurrence: US)
  Receive Date: 20141222
  Receipt Date: 20161007
  Transmission Date: 20170206
  Serious: No
  Sender: FDA-Public Use
  Company Number: US-SA-2014SA137138

PATIENT
  Age: 47 Year
  Sex: Female

DRUGS (15)
  1. BUTALBITAL [Concomitant]
     Active Substance: BUTALBITAL
  2. COPAXONE [Concomitant]
     Active Substance: GLATIRAMER ACETATE
     Dosage: KIT, 20 MG/ML
  3. DULOXETINE. [Concomitant]
     Active Substance: DULOXETINE
     Dosage: 60 MG
  4. AUBAGIO [Suspect]
     Active Substance: TERIFLUNOMIDE
     Route: 048
     Dates: start: 20140408
  5. AUBAGIO [Suspect]
     Active Substance: TERIFLUNOMIDE
     Route: 048
     Dates: start: 20140408
  6. CYMBALTA [Concomitant]
     Active Substance: DULOXETINE HYDROCHLORIDE
     Dosage: 30 MG
  7. AMITRIPTYLINE [Concomitant]
     Active Substance: AMITRIPTYLINE
     Dosage: 25 MG
  8. CYCLOBENZAPRINE [Concomitant]
     Active Substance: CYCLOBENZAPRINE
     Dosage: 10 MG
  9. DICYCLOMINE [Concomitant]
     Active Substance: DICYCLOMINE HYDROCHLORIDE
     Dosage: 20 MG
  10. FENTANYL. [Concomitant]
     Active Substance: FENTANYL
     Dosage: DIS 25 POW
  11. AUBAGIO [Suspect]
     Active Substance: TERIFLUNOMIDE
     Route: 048
     Dates: start: 20140408
  12. CEPHALEXIN. [Concomitant]
     Active Substance: CEPHALEXIN
     Dosage: 250 MG
  13. AMITIZA [Concomitant]
     Active Substance: LUBIPROSTONE
     Dosage: 24 MCG
  14. DOXAZOSIN [Concomitant]
     Active Substance: DOXAZOSIN\DOXAZOSIN MESYLATE
     Dosage: 4 MG
  15. TAMIFLU [Concomitant]
     Active Substance: OSELTAMIVIR PHOSPHATE
     Dosage: SUS 12 MG/ML

REACTIONS (10)
  - Muscular weakness [Not Recovered/Not Resolved]
  - Hypokalaemia [Not Recovered/Not Resolved]
  - Back pain [Unknown]
  - Fall [Not Recovered/Not Resolved]
  - Visual impairment [Not Recovered/Not Resolved]
  - Headache [Not Recovered/Not Resolved]
  - Somnolence [Unknown]
  - Fatigue [Unknown]
  - Neck pain [Unknown]
  - Headache [Unknown]

NARRATIVE: CASE EVENT DATE: 20150201
